FAERS Safety Report 8790351 (Version 1)
Quarter: 2012Q4

REPORT INFORMATION
  Report Type: 
  Country: US (occurrence: US)
  Receive Date: 20120917
  Receipt Date: 20120917
  Transmission Date: 20130627
  Serious: No
  Sender: FDA-Public Use
  Company Number: US-JNJFOC-20120902476

PATIENT
  Age: 27 Year
  Sex: Female

DRUGS (2)
  1. DURAGESIC [Suspect]
     Indication: ANALGESIC THERAPY
     Route: 062
  2. FENTANYL [Suspect]
     Indication: ANALGESIC THERAPY
     Route: 062

REACTIONS (3)
  - Wrong technique in drug usage process [Unknown]
  - Product quality issue [Unknown]
  - Product adhesion issue [None]
